FAERS Safety Report 15412734 (Version 4)
Quarter: 2018Q4

REPORT INFORMATION
  Report Type: Spontaneous
  Country: JP (occurrence: JP)
  Receive Date: 20180921
  Receipt Date: 20181214
  Transmission Date: 20190204
  Serious: Yes (Hospitalization)
  Sender: FDA-Public Use
  Company Number: JP-ASTRAZENECA-2018SF20343

PATIENT
  Age: 56 Year
  Sex: Male
  Weight: 56 kg

DRUGS (8)
  1. ONGLYZA [Suspect]
     Active Substance: SAXAGLIPTIN HYDROCHLORIDE
     Indication: TYPE 2 DIABETES MELLITUS
     Route: 048
     Dates: start: 20150227, end: 20180824
  2. BIO-THREE [Concomitant]
     Active Substance: HERBALS
     Dates: start: 20180727, end: 20180824
  3. IRRIBOW [Concomitant]
     Active Substance: RAMOSETRON HYDROCHLORIDE
     Dates: start: 20180817, end: 20180824
  4. METGLUCO [Concomitant]
     Active Substance: METFORMIN HYDROCHLORIDE
     Dates: start: 2013, end: 20180824
  5. MICARDIS [Concomitant]
     Active Substance: TELMISARTAN
  6. LOPEMIN [Concomitant]
     Active Substance: LOPERAMIDE HYDROCHLORIDE
     Dates: start: 20180817, end: 20180824
  7. ATELEC [Concomitant]
     Active Substance: CILNIDIPINE
  8. SEIBULE [Concomitant]
     Active Substance: MIGLITOL
     Dates: start: 20170331, end: 20180824

REACTIONS (1)
  - Colitis ulcerative [Recovering/Resolving]

NARRATIVE: CASE EVENT DATE: 201806
